FAERS Safety Report 23353263 (Version 2)
Quarter: 2024Q1

REPORT INFORMATION
  Report Type: Spontaneous
  Country: US (occurrence: US)
  Receive Date: 20231231
  Receipt Date: 20240206
  Transmission Date: 20240410
  Serious: No
  Sender: FDA-Public Use
  Company Number: US-SA-SAC20231225000116

PATIENT
  Age: 57 Year
  Sex: Male
  Weight: 97 kg

DRUGS (15)
  1. KEVZARA [Suspect]
     Active Substance: SARILUMAB
     Indication: Polymyalgia rheumatica
     Dosage: 200 MG, QOW
     Route: 058
     Dates: start: 20231103
  2. PSEUDOEPHEDRINE HYDROCHLORIDE [Concomitant]
     Active Substance: PSEUDOEPHEDRINE HYDROCHLORIDE
     Dosage: UNK
  3. BEE POLLEN [Concomitant]
     Active Substance: BEE POLLEN
  4. CALCIUM;MAGNESIUM;ZINC [Concomitant]
     Dosage: UNK
  5. UNISON [CHLORAMPHENICOL] [Concomitant]
     Dosage: UNK
  6. PREDNISONE [Concomitant]
     Active Substance: PREDNISONE
  7. PREDNISONE [Concomitant]
     Active Substance: PREDNISONE
     Dosage: UNK
  8. FIBER THERAPY [Concomitant]
  9. .ALPHA.-TOCOPHEROL [Concomitant]
     Active Substance: .ALPHA.-TOCOPHEROL
  10. VITAMIN C [Concomitant]
     Active Substance: ASCORBIC ACID
  11. COENZYME Q10 [Concomitant]
     Active Substance: DIETARY SUPPLEMENT\UBIDECARENONE
  12. LYCOPENE [Concomitant]
     Active Substance: LYCOPENE
  13. MELATONIN [Concomitant]
     Active Substance: MELATONIN
  14. MESALAMINE [Concomitant]
     Active Substance: MESALAMINE
  15. LYSINE [Concomitant]
     Active Substance: LYSINE

REACTIONS (2)
  - Constipation [Recovered/Resolved]
  - Injection site erythema [Unknown]

NARRATIVE: CASE EVENT DATE: 20231101
